FAERS Safety Report 9857160 (Version 2)
Quarter: 2014Q1

REPORT INFORMATION
  Report Type: Spontaneous
  Country: US (occurrence: US)
  Receive Date: 20140130
  Receipt Date: 20140130
  Transmission Date: 20141002
  Serious: Yes (Disabling)
  Sender: FDA-Public Use
  Company Number: US-GE HEALTHCARE MEDICAL DIAGNOSTICS-OSCN-PR-0909S-0416

PATIENT
  Sex: Male

DRUGS (1)
  1. GADOLINIUM (UNSPECIFIED) [Suspect]
     Indication: ARTHRALGIA
     Dates: start: 20070823, end: 20070823

REACTIONS (1)
  - Nephrogenic systemic fibrosis [Not Recovered/Not Resolved]
